FAERS Safety Report 10006725 (Version 5)
Quarter: 2014Q2

REPORT INFORMATION
  Report Type: Spontaneous
  Country: US (occurrence: None)
  Receive Date: 20140311
  Receipt Date: 20140506
  Transmission Date: 20141212
  Serious: Yes (Disabling, Other)
  Sender: FDA-Public Use
  Company Number: 1403-0444

PATIENT
  Age: 84 Year
  Sex: Female

DRUGS (6)
  1. EYLEA [Suspect]
     Indication: AGE-RELATED MACULAR DEGENERATION
     Dates: start: 20140120, end: 20140225
  2. OFLOXACIN (OFLOXACIN) (OFLOXACIN) [Concomitant]
  3. SIMVASTATIN (SIMVASTATIN) [Concomitant]
  4. WARFARIN (WARFARIN) [Concomitant]
  5. AMLODIPINE (AMLODIPINE) [Concomitant]
  6. ASA (ACETYLSALICYLIC ACID) [Concomitant]

REACTIONS (4)
  - Blindness [None]
  - Eye inflammation [None]
  - Blindness transient [None]
  - Incorrect product storage [None]
